FAERS Safety Report 6856600-2 (Version None)
Quarter: 2010Q3

REPORT INFORMATION
  Report Type: 
  Country: None (occurrence: None)
  Receive Date: 20100719
  Receipt Date: 20100706
  Transmission Date: 20110219
  Serious: No
  Sender: FDA-Public Use
  Company Number: KR-JNJFOC-20100702690

PATIENT
  Age: 55 Year
  Sex: Female

DRUGS (10)
  1. FENTANYL-100 [Suspect]
     Indication: CANCER PAIN
     Route: 062
  2. FENTANYL-100 [Suspect]
     Dosage: FOR THE SECOND MONTH
     Route: 062
  3. FENTANYL-100 [Suspect]
     Dosage: FOR THE THIRD MONTH
     Route: 062
  4. FENTANYL-100 [Suspect]
     Dosage: FOR THE FIRST MONTH
     Route: 062
  5. TRAMADOL HYDROCHLORIDE AND ACETAMINOPHEN [Suspect]
     Indication: CANCER PAIN
     Dosage: DOSE: 150/1,500 MG/DAY
     Route: 065
  6. OXYCODONE HCL [Suspect]
     Indication: CANCER PAIN
     Route: 065
  7. OXYCODONE HCL [Suspect]
     Route: 065
  8. GABAPENTIN [Suspect]
     Indication: CANCER PAIN
     Route: 065
  9. GABAPENTIN [Suspect]
     Route: 065
  10. ALPRAZOLAM [Concomitant]
     Indication: CANCER PAIN
     Route: 065

REACTIONS (4)
  - CONSTIPATION [None]
  - DEPRESSED MOOD [None]
  - DRUG ADMINISTERED AT INAPPROPRIATE SITE [None]
  - SOMNOLENCE [None]
